FAERS Safety Report 5361203-5 (Version None)
Quarter: 2007Q2

REPORT INFORMATION
  Report Type: 
  Country: None (occurrence: None)
  Receive Date: 20070614
  Receipt Date: 20070529
  Transmission Date: 20071010
  Serious: Yes (Death, Hospitalization)
  Sender: FDA-Public Use
  Company Number: DSA_29983_2007

PATIENT
  Age: 76 Year
  Sex: Male

DRUGS (1)
  1. ENALAPRIL MALEATE W/HYDROCHLOROTHIAZIDE (ENALAPRIL MALEATE - HCTZ) [Suspect]
     Indication: CARDIAC FAILURE
     Dosage: (1 DF QD ORAL)
     Route: 048

REACTIONS (5)
  - ACUTE MYOCARDIAL INFARCTION [None]
  - ANGIOEDEMA [None]
  - ANOXIC ENCEPHALOPATHY [None]
  - ASPHYXIA [None]
  - RESPIRATORY ARREST [None]
